FAERS Safety Report 23646989 (Version 1)
Quarter: 2024Q1

REPORT INFORMATION
  Report Type: Spontaneous
  Country: GB (occurrence: GB)
  Receive Date: 20240319
  Receipt Date: 20240319
  Transmission Date: 20240410
  Serious: Yes (Other)
  Sender: FDA-Public Use
  Company Number: None

PATIENT
  Age: 48 Year
  Sex: Female
  Weight: 58 kg

DRUGS (12)
  1. PRAVASTATIN SODIUM [Suspect]
     Active Substance: PRAVASTATIN SODIUM
     Indication: Product used for unknown indication
     Dosage: AT NIGHT
     Dates: start: 20240222
  2. AMITRIPTYLINE HYDROCHLORIDE [Concomitant]
     Active Substance: AMITRIPTYLINE HYDROCHLORIDE
     Dosage: EVERY EVENING 2 HOURS BEFORE BEDTIME
     Dates: start: 20230921
  3. ATORVASTATIN [Concomitant]
     Active Substance: ATORVASTATIN
     Dates: start: 20230921, end: 20240222
  4. BISOPROLOL [Concomitant]
     Active Substance: BISOPROLOL\BISOPROLOL FUMARATE
     Dates: start: 20230921
  5. FAMOTIDINE [Concomitant]
     Active Substance: FAMOTIDINE
     Dosage: USE AS DIRECTED
     Dates: start: 20230921
  6. NIFEDIPINE [Concomitant]
     Active Substance: NIFEDIPINE
     Dates: start: 20230921
  7. RIZATRIPTAN [Concomitant]
     Active Substance: RIZATRIPTAN
     Indication: Migraine
     Dosage: TAKE ONE AS SOON AS POSSIBLE AFTER ONSET OF MIG...
     Dates: start: 20230921
  8. SERTRALINE [Concomitant]
     Active Substance: SERTRALINE HYDROCHLORIDE
     Dates: start: 20230921
  9. SUMATRIPTAN [Concomitant]
     Active Substance: SUMATRIPTAN
     Indication: Migraine
     Dosage: TAKE ONE AS SOON AS POSSIBLE AFTER ONSET OF MIG...
     Dates: start: 20230921
  10. TOPIRAMATE [Concomitant]
     Active Substance: TOPIRAMATE
     Dosage: TAKE ONE TWICE DAILY
     Dates: start: 20230921
  11. VERAPAMIL HYDROCHLORIDE [Concomitant]
     Active Substance: VERAPAMIL HYDROCHLORIDE
     Dates: start: 20230802
  12. ZOLMITRIPTAN [Concomitant]
     Active Substance: ZOLMITRIPTAN
     Indication: Migraine
     Dosage: AS DIRECTED
     Dates: start: 20230304

REACTIONS (2)
  - Abdominal discomfort [Recovering/Resolving]
  - Cluster headache [Unknown]

NARRATIVE: CASE EVENT DATE: 20240307
